FAERS Safety Report 5802384-6 (Version None)
Quarter: 2008Q3

REPORT INFORMATION
  Report Type: 
  Country: None (occurrence: None)
  Receive Date: 20080707
  Receipt Date: 20080630
  Transmission Date: 20090109
  Serious: Yes (Other)
  Sender: FDA-Public Use
  Company Number: US-GILEAD-2008-0017100

PATIENT
  Sex: Female

DRUGS (7)
  1. LETAIRIS [Suspect]
     Indication: PULMONARY ARTERIAL HYPERTENSION
     Route: 048
     Dates: start: 20080602, end: 20080609
  2. LASIX [Concomitant]
  3. LEVOFLOXACIN [Concomitant]
  4. ZOLOFT [Concomitant]
  5. ADVIL [Concomitant]
  6. POTASSIUM CHLORIDE [Concomitant]
  7. MELATONIN [Concomitant]

REACTIONS (4)
  - ASTHENIA [None]
  - CARDIAC FLUTTER [None]
  - EYE SWELLING [None]
  - OEDEMA PERIPHERAL [None]
